FAERS Safety Report 22029430 (Version 1)
Quarter: 2023Q1

REPORT INFORMATION
  Report Type: Spontaneous
  Country: US (occurrence: US)
  Receive Date: 20230223
  Receipt Date: 20230223
  Transmission Date: 20230417
  Serious: Yes (Other)
  Sender: FDA-Public Use
  Company Number: US-ALLERGAN-2304647US

PATIENT
  Sex: Female
  Weight: 61.234 kg

DRUGS (4)
  1. REFRESH CLASSIC [Suspect]
     Active Substance: POLYVINYL ALCOHOL\POVIDONE
     Indication: Dry eye
     Dosage: 2 GTT
     Route: 047
     Dates: start: 20230122, end: 20230123
  2. PROTONIX [Concomitant]
     Active Substance: PANTOPRAZOLE SODIUM
     Indication: Gastrooesophageal reflux disease
  3. DIAZEPAM [Concomitant]
     Active Substance: DIAZEPAM
     Indication: Oropharyngeal spasm
  4. BENADRYL [Concomitant]
     Active Substance: DIPHENHYDRAMINE HYDROCHLORIDE
     Indication: Seasonal allergy

REACTIONS (9)
  - Skin infection [Unknown]
  - Plastic surgery to the face [Recovering/Resolving]
  - Muscle twitching [Recovering/Resolving]
  - Eyelid ptosis [Recovering/Resolving]
  - Swelling face [Recovering/Resolving]
  - Pruritus [Unknown]
  - Sinus disorder [Recovering/Resolving]
  - Eye irritation [Recovering/Resolving]
  - Vision blurred [Not Recovered/Not Resolved]

NARRATIVE: CASE EVENT DATE: 20230101
